FAERS Safety Report 13824644 (Version 2)
Quarter: 2019Q4

REPORT INFORMATION
  Report Type: Spontaneous
  Country: US (occurrence: US)
  Receive Date: 20170802
  Receipt Date: 20191223
  Transmission Date: 20200122
  Serious: Yes (Other)
  Sender: FDA-Public Use
  Company Number: US-ACTELION-A-CH2017-157233

PATIENT
  Age: 31 Year
  Sex: Female

DRUGS (1)
  1. EPOPROSTENOL SODIUM. [Suspect]
     Active Substance: EPOPROSTENOL SODIUM
     Indication: PULMONARY ARTERIAL HYPERTENSION
     Route: 042

REACTIONS (7)
  - Hyperthyroidism [Unknown]
  - Goitre [Unknown]
  - Anti-thyroid antibody positive [Unknown]
  - Iodine uptake increased [Unknown]
  - Autoimmune thyroiditis [Unknown]
  - Biopsy thyroid gland abnormal [Unknown]
  - Swelling [Unknown]
